FAERS Safety Report 6332474-3 (Version None)
Quarter: 2009Q3

REPORT INFORMATION
  Report Type: 
  Country: None (occurrence: None)
  Receive Date: 20090828
  Receipt Date: 20090820
  Transmission Date: 20100115
  Serious: Yes (Other)
  Sender: FDA-Public Use
  Company Number: CO-PFIZER INC-2009259361

PATIENT
  Age: 61 Year

DRUGS (2)
  1. NORVASC [Suspect]
     Indication: HYPERTENSION
     Dosage: 5 MG, 1X/DAY
     Route: 048
     Dates: start: 20090501
  2. LORATADINE [Concomitant]
     Dosage: 10 UNK, UNK
     Route: 048

REACTIONS (1)
  - VITRECTOMY [None]
